FAERS Safety Report 21398569 (Version 1)
Quarter: 2022Q3

REPORT INFORMATION
  Report Type: Report from Study
  Country: US (occurrence: US)
  Receive Date: 20220930
  Receipt Date: 20220930
  Transmission Date: 20221027
  Serious: Yes (Death, Hospitalization, Other)
  Sender: FDA-Public Use
  Company Number: US-SEATTLE GENETICS-2022SGN09112

PATIENT
  Age: 65 Year
  Sex: Female

DRUGS (1)
  1. TUCATINIB [Suspect]
     Active Substance: TUCATINIB
     Indication: Breast cancer female
     Dosage: UNK
     Route: 065

REACTIONS (3)
  - Death [Fatal]
  - Fatigue [Unknown]
  - Dehydration [Unknown]

NARRATIVE: CASE EVENT DATE: 20220901
